FAERS Safety Report 7446728-0 (Version None)
Quarter: 2011Q2

REPORT INFORMATION
  Report Type: 
  Country: None (occurrence: None)
  Receive Date: 20110429
  Receipt Date: 20101122
  Transmission Date: 20111010
  Serious: No
  Sender: FDA-Public Use
  Company Number: US-ASTRAZENECA-2010SE47019

PATIENT
  Sex: Female

DRUGS (1)
  1. ESOMEPRAZOLE MAGNESIUM [Suspect]
     Route: 048

REACTIONS (5)
  - EYE DEGENERATIVE DISORDER [None]
  - CHEST PAIN [None]
  - DRUG INEFFECTIVE [None]
  - HIATUS HERNIA [None]
  - MALAISE [None]
